FAERS Safety Report 18233431 (Version 8)
Quarter: 2021Q2

REPORT INFORMATION
  Report Type: Report from Study
  Country: US (occurrence: US)
  Receive Date: 20200904
  Receipt Date: 20210502
  Transmission Date: 20210717
  Serious: Yes (Other)
  Sender: FDA-Public Use
  Company Number: NVSC2020US240373

PATIENT
  Sex: Male

DRUGS (1)
  1. ENTRESTO [Suspect]
     Active Substance: SACUBITRIL\VALSARTAN
     Indication: CARDIAC FAILURE
     Dosage: UNK
     Route: 065
     Dates: start: 20200810

REACTIONS (15)
  - Fatigue [Unknown]
  - Memory impairment [Unknown]
  - Hypertension [Recovering/Resolving]
  - Muscle spasms [Recovered/Resolved]
  - Cataract [Unknown]
  - Post procedural complication [Unknown]
  - Visual impairment [Unknown]
  - COVID-19 [Recovered/Resolved]
  - Dehydration [Recovering/Resolving]
  - Macular degeneration [Unknown]
  - Glaucoma [Unknown]
  - Increased tendency to bruise [Unknown]
  - Fall [Unknown]
  - Ocular hyperaemia [Recovering/Resolving]
  - Weight decreased [Unknown]
